FAERS Safety Report 22066838 (Version 1)
Quarter: 2023Q1

REPORT INFORMATION
  Report Type: Spontaneous
  Country: DE (occurrence: DE)
  Receive Date: 20230306
  Receipt Date: 20230306
  Transmission Date: 20230418
  Serious: Yes (Death, Other)
  Sender: FDA-Public Use
  Company Number: DE-GILEAD-2023-0614564

PATIENT
  Age: 83 Year
  Sex: Male

DRUGS (1)
  1. YESCARTA [Suspect]
     Active Substance: AXICABTAGENE CILOLEUCEL
     Indication: Diffuse large B-cell lymphoma
     Dosage: UNK
     Route: 042
     Dates: start: 20230118, end: 20230118

REACTIONS (3)
  - Haemophagocytic lymphohistiocytosis [Fatal]
  - Cytokine release syndrome [Fatal]
  - Abdominal compartment syndrome [Unknown]

NARRATIVE: CASE EVENT DATE: 20230119
